FAERS Safety Report 8452661-8 (Version None)
Quarter: 2012Q2

REPORT INFORMATION
  Report Type: 
  Country: None (occurrence: None)
  Receive Date: 20120620
  Receipt Date: 20120614
  Transmission Date: 20120825
  Serious: Yes (Hospitalization, Other)
  Sender: FDA-Public Use
  Company Number: PHHY2011CA101220

PATIENT
  Sex: Female

DRUGS (3)
  1. AFINITOR [Suspect]
     Indication: CARCINOID TUMOUR
     Dosage: 10 MG, (EVERY DAY)
     Route: 048
     Dates: start: 20110801, end: 20120223
  2. SANDOSTATIN LAR [Suspect]
     Indication: CARCINOID TUMOUR
     Dosage: 30 MG, QMO
     Route: 030
     Dates: start: 20060901
  3. DACARBAZINE [Concomitant]
     Route: 042

REACTIONS (13)
  - DYSPNOEA [None]
  - FATIGUE [None]
  - JOINT SWELLING [None]
  - CYST [None]
  - NEOPLASM PROGRESSION [None]
  - MOBILITY DECREASED [None]
  - ARTHRITIS [None]
  - ARTHRALGIA [None]
  - PAIN [None]
  - SOMNOLENCE [None]
  - LOCALISED OEDEMA [None]
  - NECK PAIN [None]
  - DRUG INEFFECTIVE [None]
